FAERS Safety Report 25150573 (Version 1)
Quarter: 2025Q2

REPORT INFORMATION
  Report Type: Spontaneous
  Country: US (occurrence: US)
  Receive Date: 20250402
  Receipt Date: 20250402
  Transmission Date: 20250716
  Serious: No
  Sender: ELI LILLY AND CO
  Company Number: US-ELI_LILLY_AND_COMPANY-US202504000127

PATIENT
  Age: 30 Year
  Sex: Female

DRUGS (4)
  1. OMVOH [Suspect]
     Active Substance: MIRIKIZUMAB-MRKZ
     Indication: Colitis ulcerative
     Route: 058
     Dates: start: 2024
  2. OMVOH [Suspect]
     Active Substance: MIRIKIZUMAB-MRKZ
     Indication: Colitis ulcerative
     Route: 058
     Dates: start: 2024
  3. OMVOH [Suspect]
     Active Substance: MIRIKIZUMAB-MRKZ
     Route: 058
  4. OMVOH [Suspect]
     Active Substance: MIRIKIZUMAB-MRKZ
     Route: 058

REACTIONS (1)
  - Injection site pain [Unknown]
